FAERS Safety Report 10441304 (Version 1)
Quarter: 2014Q3

REPORT INFORMATION
  Report Type: Spontaneous
  Country: US (occurrence: None)
  Receive Date: 20140908
  Receipt Date: 20140908
  Transmission Date: 20150326
  Serious: No
  Sender: FDA-Public Use
  Company Number: None

PATIENT
  Age: 59 Year
  Sex: Male
  Weight: 110.45 kg

DRUGS (1)
  1. INTRON A [Suspect]
     Active Substance: INTERFERON ALFA-2B
     Dosage: 15 MU
     Dates: end: 20140714

REACTIONS (3)
  - Blood triglycerides increased [None]
  - Blood glucose increased [None]
  - Bilirubin conjugated increased [None]

NARRATIVE: CASE EVENT DATE: 20140714
